FAERS Safety Report 11540550 (Version 1)
Quarter: 2015Q3

REPORT INFORMATION
  Report Type: Spontaneous
  Country: US (occurrence: US)
  Receive Date: 20150923
  Receipt Date: 20150923
  Transmission Date: 20151125
  Serious: No
  Sender: FDA-Public Use
  Company Number: US-BEH-2015049572

PATIENT
  Sex: Male
  Weight: 56.2 kg

DRUGS (27)
  1. HEPARIN [Concomitant]
     Active Substance: HEPARIN SODIUM
  2. MAGNESIUM OXIDE. [Concomitant]
     Active Substance: MAGNESIUM OXIDE
  3. OMEGA 3 FISH OIL AND VITAMIN D3 [Concomitant]
  4. ATOVAQUONE. [Concomitant]
     Active Substance: ATOVAQUONE
  5. LIDOCAINE. [Concomitant]
     Active Substance: LIDOCAINE
  6. ASPIRIN. [Concomitant]
     Active Substance: ASPIRIN
  7. SIROLIMUS. [Concomitant]
     Active Substance: SIROLIMUS
  8. DOXYCYCLINE. [Concomitant]
     Active Substance: DOXYCYCLINE
  9. EYE DROPS [Concomitant]
     Active Substance: TETRAHYDROZOLINE HYDROCHLORIDE
     Dosage: 0.05%
  10. CALCIUM WITH D3 [Concomitant]
  11. BIOTIN [Concomitant]
     Active Substance: BIOTIN
  12. PRIVIGEN [Suspect]
     Active Substance: HUMAN IMMUNOGLOBULIN G
     Indication: GRAFT VERSUS HOST DISEASE
     Dosage: 20 G VIALS
     Route: 042
  13. EPIPEN [Concomitant]
     Active Substance: EPINEPHRINE
  14. CENTRUM SILVER [Concomitant]
     Active Substance: VITAMINS
  15. PREDNISONE. [Concomitant]
     Active Substance: PREDNISONE
  16. VALACICLOVIR [Concomitant]
     Active Substance: VALACYCLOVIR HYDROCHLORIDE
  17. PRIVIGEN [Suspect]
     Active Substance: HUMAN IMMUNOGLOBULIN G
     Indication: IMMUNODEFICIENCY COMMON VARIABLE
     Dosage: 5 G VIALS
     Route: 042
  18. ACETAMINOPHEN. [Concomitant]
     Active Substance: ACETAMINOPHEN
  19. SOTALOL. [Concomitant]
     Active Substance: SOTALOL
  20. AUGMENTIN [Concomitant]
     Active Substance: AMOXICILLIN\CLAVULANATE POTASSIUM
  21. IRON [Concomitant]
     Active Substance: IRON
  22. PRIVIGEN [Suspect]
     Active Substance: HUMAN IMMUNOGLOBULIN G
     Indication: RHINITIS
     Dosage: 20 G VIALS
     Route: 042
  23. RESTASIS [Concomitant]
     Active Substance: CYCLOSPORINE
  24. ANDROGEL [Concomitant]
     Active Substance: TESTOSTERONE
  25. PRIVIGEN [Suspect]
     Active Substance: HUMAN IMMUNOGLOBULIN G
     Indication: RHINITIS
     Dosage: 20 G VIALS
     Route: 042
  26. PRIVIGEN [Suspect]
     Active Substance: HUMAN IMMUNOGLOBULIN G
     Indication: BONE MARROW TRANSPLANT
     Dosage: 20 G VIALS
     Route: 042
  27. SODIUM CHLORIDE. [Concomitant]
     Active Substance: SODIUM CHLORIDE

REACTIONS (1)
  - Chills [Recovered/Resolved]
